FAERS Safety Report 19874731 (Version 2)
Quarter: 2021Q4

REPORT INFORMATION
  Report Type: Spontaneous
  Country: US (occurrence: US)
  Receive Date: 20210923
  Receipt Date: 20211109
  Transmission Date: 20220303
  Serious: No
  Sender: FDA-Public Use
  Company Number: US-PFIZER INC-2021830755

PATIENT
  Age: 42 Year
  Sex: Female

DRUGS (2)
  1. XELJANZ XR [Suspect]
     Active Substance: TOFACITINIB CITRATE
     Indication: Psoriatic arthropathy
     Dosage: 11 MG
     Route: 048
     Dates: start: 20210513, end: 20210622
  2. XELJANZ XR [Suspect]
     Active Substance: TOFACITINIB CITRATE
     Dosage: 11 MG, 1X/DAY
     Route: 048
     Dates: start: 20210712

REACTIONS (8)
  - Upper respiratory tract infection [Not Recovered/Not Resolved]
  - Pruritus [Unknown]
  - Ear swelling [Unknown]
  - Ear inflammation [Unknown]
  - Ear pruritus [Unknown]
  - Condition aggravated [Unknown]
  - Hypoacusis [Unknown]
  - Liver function test increased [Unknown]

NARRATIVE: CASE EVENT DATE: 20210601
